FAERS Safety Report 6956593-3 (Version None)
Quarter: 2010Q3

REPORT INFORMATION
  Report Type: 
  Country: None (occurrence: None)
  Receive Date: 20100830
  Receipt Date: 20100819
  Transmission Date: 20110219
  Serious: Yes (Other)
  Sender: FDA-Public Use
  Company Number: IN-PFIZER INC-2010104895

PATIENT
  Age: 45 Year
  Sex: Male
  Weight: 72 kg

DRUGS (1)
  1. CHAMPIX [Suspect]
     Indication: SMOKING CESSATION THERAPY
     Dosage: 1 MG, 2X/DAY
     Route: 048
     Dates: start: 20100601

REACTIONS (3)
  - AGITATION [None]
  - SLEEP DISORDER [None]
  - WITHDRAWAL SYNDROME [None]
